FAERS Safety Report 20489366 (Version 1)
Quarter: 2022Q1

REPORT INFORMATION
  Report Type: Spontaneous
  Country: US (occurrence: US)
  Receive Date: 20220218
  Receipt Date: 20220218
  Transmission Date: 20220423
  Serious: No
  Sender: FDA-Public Use
  Company Number: US-GALDERMA-US2022001162

PATIENT

DRUGS (10)
  1. PROACTIV MD ADAPALENE ACNE TREATMENT [Suspect]
     Active Substance: ADAPALENE
     Indication: Acne
     Dosage: 1 DOSAGE FORM, QD, EVERY NIGHT
     Route: 061
     Dates: start: 2021
  2. PROACTIV MD ADAPALENE ACNE TREATMENT [Suspect]
     Active Substance: ADAPALENE
     Indication: Skin hyperpigmentation
  3. PROACTIV MD DAILY OIL CONTROL SPF 30 [Suspect]
     Active Substance: AVOBENZONE\OCTISALATE\OCTOCRYLENE
     Indication: Acne
     Dosage: 1 DOSAGE FORM, QD, EVERY DAY, CUTANEOUS SOLUTION
     Route: 061
     Dates: start: 2021
  4. PROACTIV MD DAILY OIL CONTROL SPF 30 [Suspect]
     Active Substance: AVOBENZONE\OCTISALATE\OCTOCRYLENE
     Indication: Skin hyperpigmentation
  5. Proactiv MD Ultra Gentle Cleanser [Concomitant]
     Indication: Acne
     Dosage: 1 DOSAGE FORM, QD, EVERY DAY
     Route: 061
     Dates: start: 2021
  6. Proactiv MD Ultra Gentle Cleanser [Concomitant]
     Indication: Skin hyperpigmentation
  7. Proactiv MD Ultra Hydrating Moisturizer [Concomitant]
     Indication: Acne
     Dosage: 1 DOSAGE FORM, QD, EVERY DAY
     Route: 061
     Dates: start: 2021
  8. Proactiv MD Ultra Hydrating Moisturizer [Concomitant]
     Indication: Skin hyperpigmentation
  9. Proactiv Post Acne Scar Gel [Concomitant]
     Indication: Acne
     Dosage: 1 DOSAGE FORM, QD, EVERY DAY
     Route: 061
     Dates: start: 2021
  10. Proactiv Post Acne Scar Gel [Concomitant]
     Indication: Skin hyperpigmentation

REACTIONS (1)
  - Drug ineffective [Unknown]
